FAERS Safety Report 9253162 (Version 1)
Quarter: 2013Q2

REPORT INFORMATION
  Report Type: Report from Study
  Country: VE (occurrence: VE)
  Receive Date: 20130424
  Receipt Date: 20130424
  Transmission Date: 20140414
  Serious: Yes (Other)
  Sender: FDA-Public Use
  Company Number: VE-ABBOTT-13P-178-1079531-00

PATIENT
  Age: 39 Year
  Sex: Male
  Weight: 130 kg

DRUGS (1)
  1. HUMIRA [Suspect]
     Indication: PSORIASIS
     Route: 058
     Dates: start: 20110427, end: 201207

REACTIONS (3)
  - Tuberculin test positive [Not Recovered/Not Resolved]
  - Skin ulcer [Recovering/Resolving]
  - Infected skin ulcer [Recovering/Resolving]
